FAERS Safety Report 16664948 (Version 2)
Quarter: 2020Q2

REPORT INFORMATION
  Report Type: Spontaneous
  Country: FR (occurrence: FR)
  Receive Date: 20190803
  Receipt Date: 20200516
  Transmission Date: 20200713
  Serious: Yes (Other)
  Sender: FDA-Public Use
  Company Number: FR-AUROBINDO-AUR-APL-2018-043080

PATIENT
  Age: 52 Year
  Sex: Female

DRUGS (4)
  1. MIANSERIN [Interacting]
     Active Substance: MIANSERIN
     Indication: ANTIDEPRESSANT THERAPY
     Dosage: 30 MILLIGRAM, ONCE A DAY
     Route: 065
  2. CYAMEMAZINE [Interacting]
     Active Substance: CYAMEMAZINE
     Indication: PRODUCT USED FOR UNKNOWN INDICATION
     Dosage: 25 MILLIGRAM, ONCE A DAY
     Route: 065
  3. FLUOXETINE [Suspect]
     Active Substance: FLUOXETINE HYDROCHLORIDE
     Indication: ANTIDEPRESSANT THERAPY
     Dosage: 20 MILLIGRAM, ONCE A DAY
     Route: 065
  4. SELINCRO [Interacting]
     Active Substance: NALMEFENE HYDROCHLORIDE DIHYDRATE
     Indication: ALCOHOLISM
     Dosage: 18 MILLIGRAM, ONCE A DAY
     Route: 065
     Dates: start: 201606

REACTIONS (6)
  - Choking [Recovered/Resolved]
  - Snoring [Recovered/Resolved]
  - Drug interaction [Recovered/Resolved]
  - Sleep apnoea syndrome [Recovered/Resolved]
  - Alcohol interaction [Recovered/Resolved]
  - Somnolence [Recovered/Resolved]

NARRATIVE: CASE EVENT DATE: 201610
